FAERS Safety Report 8271247-1 (Version None)
Quarter: 2012Q2

REPORT INFORMATION
  Report Type: 
  Country: None (occurrence: None)
  Receive Date: 20120410
  Receipt Date: 20120404
  Transmission Date: 20120825
  Serious: Yes (Other)
  Sender: FDA-Public Use
  Company Number: AU-PFIZER INC-2012044760

PATIENT
  Age: 32 Year
  Sex: Male
  Weight: 76 kg

DRUGS (1)
  1. VIAGRA [Suspect]
     Dosage: 50 MG, 3 TIMES A WEEK

REACTIONS (4)
  - PAIN [None]
  - DRUG INEFFECTIVE [None]
  - PYREXIA [None]
  - TOOTH INFECTION [None]
